FAERS Safety Report 8946893 (Version 1)
Quarter: 2012Q4

REPORT INFORMATION
  Report Type: 
  Country: GB (occurrence: GB)
  Receive Date: 20121205
  Receipt Date: 20121205
  Transmission Date: 20130627
  Serious: Yes (Hospitalization)
  Sender: FDA-Public Use
  Company Number: GB-GLAXOSMITHKLINE-B0848025A

PATIENT
  Age: 37 Year
  Sex: Male
  Weight: 80 kg

DRUGS (3)
  1. LAMOTRIGINE [Suspect]
     Dosage: 150MG Per day
     Route: 048
     Dates: start: 20101001, end: 20110114
  2. CANDESARTAN [Concomitant]
     Dosage: 2MG Per day
  3. METFORMIN [Concomitant]
     Dosage: 500MG Per day

REACTIONS (3)
  - Drug reaction with eosinophilia and systemic symptoms [Recovered/Resolved with Sequelae]
  - Tubulointerstitial nephritis [Recovered/Resolved with Sequelae]
  - Renal failure acute [Recovered/Resolved with Sequelae]
